FAERS Safety Report 12157842 (Version 4)
Quarter: 2017Q4

REPORT INFORMATION
  Report Type: Report from Study
  Country: US (occurrence: US)
  Receive Date: 20160308
  Receipt Date: 20171220
  Transmission Date: 20180320
  Serious: Yes (Other)
  Sender: FDA-Public Use
  Company Number: PHEH2016US005563

PATIENT
  Age: 31 Year
  Sex: Female
  Weight: 71.2 kg

DRUGS (2)
  1. GILENYA [Suspect]
     Active Substance: FINGOLIMOD HYDROCHLORIDE
     Dosage: UNK
     Route: 065
     Dates: start: 201704
  2. GILENYA [Suspect]
     Active Substance: FINGOLIMOD HYDROCHLORIDE
     Indication: RELAPSING-REMITTING MULTIPLE SCLEROSIS
     Dosage: 0.5 MG, QD
     Route: 048
     Dates: start: 20150916, end: 20161215

REACTIONS (12)
  - Speech disorder [Unknown]
  - Cognitive disorder [Unknown]
  - Fatigue [Unknown]
  - Fall [Unknown]
  - Alopecia [Recovering/Resolving]
  - White blood cell count decreased [Unknown]
  - Lymphocyte count decreased [Recovering/Resolving]
  - Multiple sclerosis relapse [Recovered/Resolved]
  - Sinusitis [Unknown]
  - Multiple sclerosis [Not Recovered/Not Resolved]
  - Multiple sclerosis relapse [Recovering/Resolving]
  - Gait disturbance [Unknown]

NARRATIVE: CASE EVENT DATE: 20161201
